FAERS Safety Report 7353245-5 (Version None)
Quarter: 2011Q1

REPORT INFORMATION
  Report Type: 
  Country: None (occurrence: None)
  Receive Date: 20110315
  Receipt Date: 20110302
  Transmission Date: 20110831
  Serious: Yes (Other)
  Sender: FDA-Public Use
  Company Number: US-SANOFI-AVENTIS-2011SA014260

PATIENT
  Sex: Male

DRUGS (1)
  1. JEVTANA KIT [Suspect]
     Route: 041

REACTIONS (1)
  - LEUKAEMIA [None]
